FAERS Safety Report 26188847 (Version 1)
Quarter: 2025Q4

REPORT INFORMATION
  Report Type: Spontaneous
  Country: US (occurrence: US)
  Receive Date: 20251222
  Receipt Date: 20251222
  Transmission Date: 20260117
  Serious: No
  Sender: ROCHE
  Company Number: US-ROCHE-10000463533

PATIENT
  Age: 42 Year
  Sex: Female

DRUGS (5)
  1. CELLCEPT [Suspect]
     Active Substance: MYCOPHENOLATE MOFETIL
     Indication: Lupus nephritis
  2. CORTISONE [Concomitant]
     Active Substance: CORTISONE
  3. PLAQUENIL [Concomitant]
     Active Substance: HYDROXYCHLOROQUINE SULFATE
  4. TELMISARTAN [Concomitant]
     Active Substance: TELMISARTAN
     Indication: Hypertension
  5. BENLYSTA [Concomitant]
     Active Substance: BELIMUMAB

REACTIONS (2)
  - Off label use [Unknown]
  - No adverse event [Unknown]
